FAERS Safety Report 11542631 (Version 1)
Quarter: 2015Q3

REPORT INFORMATION
  Report Type: Spontaneous
  Country: US (occurrence: US)
  Receive Date: 20150923
  Receipt Date: 20150923
  Transmission Date: 20151125
  Serious: No
  Sender: FDA-Public Use
  Company Number: US-PFIZER INC-2015315579

PATIENT
  Age: 83 Year
  Sex: Female
  Weight: 69.8 kg

DRUGS (3)
  1. PREMARIN [Suspect]
     Active Substance: ESTROGENS, CONJUGATED
     Dosage: 0.65 MG, ALTERNATE DAY
     Dates: start: 20150720, end: 20150727
  2. PREMARIN [Suspect]
     Active Substance: ESTROGENS, CONJUGATED
     Dosage: 0.65 MG, DAILY
  3. PREMARIN [Suspect]
     Active Substance: ESTROGENS, CONJUGATED
     Dosage: 0.65 MG, 1X/DAY
     Dates: start: 1970

REACTIONS (1)
  - Hearing impaired [Unknown]
